FAERS Safety Report 7068203-8 (Version None)
Quarter: 2010Q4

REPORT INFORMATION
  Report Type: 
  Country: None (occurrence: None)
  Receive Date: 20101028
  Receipt Date: 20100219
  Transmission Date: 20110411
  Serious: No
  Sender: FDA-Public Use
  Company Number: US-MYLANLABS-2010S1001012

PATIENT
  Age: 65 Year
  Sex: Female

DRUGS (3)
  1. DIAZEPAM [Suspect]
     Indication: INSOMNIA
     Route: 048
     Dates: start: 20091224
  2. EVISTA [Concomitant]
  3. NEXIUM [Concomitant]

REACTIONS (4)
  - DRUG EFFECT INCREASED [None]
  - FEELING ABNORMAL [None]
  - HANGOVER [None]
  - SOMNOLENCE [None]
